FAERS Safety Report 11868848 (Version 13)
Quarter: 2020Q1

REPORT INFORMATION
  Report Type: Spontaneous
  Country: CA (occurrence: CA)
  Receive Date: 20151225
  Receipt Date: 20200318
  Transmission Date: 20200409
  Serious: Yes (Other)
  Sender: FDA-Public Use
  Company Number: CA-ROCHE-1684406

PATIENT
  Age: 66 Year
  Sex: Female
  Weight: 83 kg

DRUGS (22)
  1. SPIRIVA [Concomitant]
     Active Substance: TIOTROPIUM BROMIDE MONOHYDRATE
     Dosage: 18 UG, QD
     Route: 065
     Dates: start: 201603, end: 201603
  2. JANUVIA [Concomitant]
     Active Substance: SITAGLIPTIN PHOSPHATE
     Indication: TYPE 2 DIABETES MELLITUS
     Dosage: 1 DF, QD
     Route: 065
     Dates: start: 2011
  3. VENTOLINE [SALBUTAMOL] [Concomitant]
     Active Substance: ALBUTEROL SULFATE
     Indication: ASTHMA
     Dosage: 100 UG, PRN
     Route: 065
  4. VENTOLINE [SALBUTAMOL] [Concomitant]
     Active Substance: ALBUTEROL SULFATE
     Dosage: 1 DF, PRN (3 TO 4 TIMES A DAY)
     Route: 055
  5. VENTOLINE [SALBUTAMOL] [Concomitant]
     Active Substance: ALBUTEROL SULFATE
     Dosage: 2 PUFFS (100 UG), 1-2 TIMES A WEEK
     Route: 055
  6. XOLAIR [Suspect]
     Active Substance: OMALIZUMAB
     Route: 058
     Dates: start: 20170920
  7. ACCUPRIL [Concomitant]
     Active Substance: QUINAPRIL HYDROCHLORIDE
     Indication: HYPERTENSION
     Dosage: 1 DF, QD
     Route: 065
     Dates: start: 2013
  8. XOLAIR [Suspect]
     Active Substance: OMALIZUMAB
     Route: 058
     Dates: start: 20140123, end: 20140123
  9. XOLAIR [Suspect]
     Active Substance: OMALIZUMAB
     Route: 058
     Dates: start: 20171004
  10. XOLAIR [Suspect]
     Active Substance: OMALIZUMAB
     Route: 058
     Dates: start: 20180124
  11. PREDNISONE. [Concomitant]
     Active Substance: PREDNISONE
     Indication: PRODUCT USED FOR UNKNOWN INDICATION
     Route: 065
  12. XOLAIR [Suspect]
     Active Substance: OMALIZUMAB
     Route: 058
     Dates: start: 20170720
  13. XOLAIR [Suspect]
     Active Substance: OMALIZUMAB
     Route: 058
     Dates: start: 20181010
  14. XOLAIR [Suspect]
     Active Substance: OMALIZUMAB
     Route: 058
     Dates: start: 20191216
  15. INCRUSE ELLIPTA [Concomitant]
     Active Substance: UMECLIDINIUM BROMIDE
     Indication: ASTHMA
     Dosage: 1 DF, QD
     Route: 055
     Dates: start: 201703
  16. XOLAIR [Suspect]
     Active Substance: OMALIZUMAB
     Indication: ASTHMA
     Route: 058
     Dates: start: 20081208
  17. XOLAIR [Suspect]
     Active Substance: OMALIZUMAB
     Route: 058
     Dates: start: 20160524
  18. XOLAIR [Suspect]
     Active Substance: OMALIZUMAB
     Route: 058
     Dates: start: 20170706
  19. METFORMIN [Concomitant]
     Active Substance: METFORMIN HYDROCHLORIDE
     Indication: PRODUCT USED FOR UNKNOWN INDICATION
     Route: 065
  20. HYDROCHLOROTHIAZIDE. [Concomitant]
     Active Substance: HYDROCHLOROTHIAZIDE
     Indication: PRODUCT USED FOR UNKNOWN INDICATION
     Dosage: DRUG REPORTED AS HYDRAZIDE
     Route: 065
  21. ZENHALE [Concomitant]
     Active Substance: FORMOTEROL FUMARATE\MOMETASONE FUROATE
     Indication: ASTHMA
     Dosage: 2 DF, BID
     Route: 055
  22. SPIRIVA [Concomitant]
     Active Substance: TIOTROPIUM BROMIDE MONOHYDRATE
     Indication: ASTHMA
     Dosage: 1 DF, QD
     Route: 065
     Dates: start: 2014

REACTIONS (20)
  - Bronchitis [Not Recovered/Not Resolved]
  - Asthma [Not Recovered/Not Resolved]
  - Pneumonia [Unknown]
  - Cough [Unknown]
  - Nasal septum deviation [Unknown]
  - Infection [Unknown]
  - Obstructive airways disorder [Unknown]
  - Heart rate increased [Recovering/Resolving]
  - Conjunctivitis [Unknown]
  - Eye symptom [Unknown]
  - Oropharyngeal pain [Unknown]
  - Influenza [Unknown]
  - Nasopharyngitis [Unknown]
  - Red blood cell count decreased [Unknown]
  - Forced expiratory volume decreased [Unknown]
  - Nausea [Not Recovered/Not Resolved]
  - Weight decreased [Unknown]
  - Urinary tract infection [Unknown]
  - Eosinophil count increased [Unknown]
  - Immunoglobulins increased [Unknown]

NARRATIVE: CASE EVENT DATE: 201509
